FAERS Safety Report 24136882 (Version 1)
Quarter: 2024Q3

REPORT INFORMATION
  Report Type: Report from Study
  Country: US (occurrence: US)
  Receive Date: 20240725
  Receipt Date: 20240725
  Transmission Date: 20241016
  Serious: Yes (Hospitalization, Other)
  Sender: GILEAD
  Company Number: US-GILEAD-2024-0681212

PATIENT
  Sex: Male

DRUGS (10)
  1. AZTREONAM LYSINE [Suspect]
     Active Substance: AZTREONAM LYSINE
     Indication: Cystic fibrosis
     Dosage: 75 MG, TID (FOR 28 DAYS ON AND 28 DAYS OFF)
     Route: 055
  2. AZTREONAM LYSINE [Suspect]
     Active Substance: AZTREONAM LYSINE
     Indication: Pseudomonas infection
  3. DUPIXENT [Concomitant]
     Active Substance: DUPILUMAB
  4. MEROPENEM [Concomitant]
     Active Substance: MEROPENEM
  5. TOBRAMYCIN [Concomitant]
     Active Substance: TOBRAMYCIN\TOBRAMYCIN SULFATE
  6. PULMOZYME [Concomitant]
     Active Substance: DORNASE ALFA
  7. XOLAIR [Concomitant]
     Active Substance: OMALIZUMAB
  8. ELIQUIS [Concomitant]
     Active Substance: APIXABAN
  9. ACETYLCYSTEINE [Concomitant]
     Active Substance: ACETYLCYSTEINE
  10. AZITHROMYCIN [Concomitant]
     Active Substance: AZITHROMYCIN

REACTIONS (1)
  - Cystic fibrosis [Unknown]
